FAERS Safety Report 8833078 (Version 1)
Quarter: 2012Q4

REPORT INFORMATION
  Report Type: 
  Country: US (occurrence: US)
  Receive Date: 20121010
  Receipt Date: 20121010
  Transmission Date: 20130627
  Serious: Yes (Other)
  Sender: FDA-Public Use
  Company Number: US-BAYER-2012-104988

PATIENT

DRUGS (1)
  1. ALKA-SELTZER PLUS NIGHT COLD MEDICINE [Suspect]
     Indication: NASOPHARYNGITIS

REACTIONS (9)
  - Syncope [None]
  - Abnormal behaviour [None]
  - Abdominal discomfort [None]
  - Paralysis [None]
  - Sleep disorder [None]
  - Depersonalisation [None]
  - Somnolence [None]
  - Bradyphrenia [None]
  - Feeling abnormal [None]
